FAERS Safety Report 25621886 (Version 1)
Quarter: 2025Q3

REPORT INFORMATION
  Report Type: Spontaneous
  Country: US (occurrence: US)
  Receive Date: 20250730
  Receipt Date: 20250730
  Transmission Date: 20251020
  Serious: Yes (Other)
  Sender: MACLEODS
  Company Number: US-MLMSERVICE-20240715-PI132538-00200-1

PATIENT

DRUGS (18)
  1. LEVOTHYROXINE [Suspect]
     Active Substance: LEVOTHYROXINE
     Indication: Post procedural hypothyroidism
     Route: 048
     Dates: start: 2015, end: 202102
  2. LEVOTHYROXINE [Suspect]
     Active Substance: LEVOTHYROXINE
     Route: 048
  3. LEVOTHYROXINE [Suspect]
     Active Substance: LEVOTHYROXINE
     Route: 048
  4. SEMAGLUTIDE [Suspect]
     Active Substance: SEMAGLUTIDE
     Indication: Post procedural hypothyroidism
     Route: 058
  5. Acetaminophen/butalbital/ caffeine [Concomitant]
     Indication: Product used for unknown indication
     Dosage: 300 MG-50 MG-40 MG
     Route: 048
  6. ALBUTEROL [Concomitant]
     Active Substance: ALBUTEROL
     Indication: Product used for unknown indication
     Dosage: INHALE 1 PUFF Q4H
     Route: 065
  7. ALBUTEROL [Concomitant]
     Active Substance: ALBUTEROL
     Dosage: 2.5 MG/3 ML, INHALE 2.5 MG Q6H
     Route: 065
  8. ATORVASTATIN [Concomitant]
     Active Substance: ATORVASTATIN
     Indication: Product used for unknown indication
     Route: 048
  9. Budesonide-formoterol inhaler [Concomitant]
     Indication: Product used for unknown indication
     Dosage: 80 MCG-4.5 MCG,  INHALE 2 PUFFS BID
     Route: 065
  10. CALCIUM CARBONATE [Concomitant]
     Active Substance: CALCIUM CARBONATE
     Indication: Product used for unknown indication
     Route: 048
  11. Clindamycin topic 1% gel [Concomitant]
     Indication: Product used for unknown indication
     Route: 061
  12. FAMOTIDINE [Concomitant]
     Active Substance: FAMOTIDINE
     Indication: Product used for unknown indication
     Route: 048
  13. HYDROCHLOROTHIAZIDE [Concomitant]
     Active Substance: HYDROCHLOROTHIAZIDE
     Indication: Product used for unknown indication
     Route: 048
  14. Insulin aspart-insulin aspart protamine 70/30 [Concomitant]
     Indication: Product used for unknown indication
     Dosage: 55 UNITS SUBCUTANEOUSLY BID BEFORE MEALS
     Route: 058
  15. Lidocaine topical 3% cream [Concomitant]
     Indication: Product used for unknown indication
     Dosage: APPLY TO SKIN TID
     Route: 061
  16. LISINOPRIL [Concomitant]
     Active Substance: LISINOPRIL
     Indication: Product used for unknown indication
     Route: 048
  17. METFORMIN [Concomitant]
     Active Substance: METFORMIN HYDROCHLORIDE
     Indication: Product used for unknown indication
     Route: 048
  18. NAPROXEN [Concomitant]
     Active Substance: NAPROXEN
     Indication: Pain
     Dosage: PRN FOR PAIN
     Route: 048

REACTIONS (3)
  - Hyperthyroidism [Recovered/Resolved]
  - Drug interaction [Unknown]
  - Fatigue [Unknown]

NARRATIVE: CASE EVENT DATE: 20150101
